FAERS Safety Report 4506410-6 (Version None)
Quarter: 2004Q4

REPORT INFORMATION
  Report Type: 
  Country: None (occurrence: None)
  Receive Date: 20041025
  Receipt Date: 20040730
  Transmission Date: 20050328
  Serious: Yes (Hospitalization, Disabling)
  Sender: FDA-Public Use
  Company Number: US-JNJFOC-20040800430

PATIENT
  Age: 44 Year
  Sex: Female
  Weight: 82.1011 kg

DRUGS (3)
  1. INFLIXIMAB (INFLIXIMAB, RECOMBINANT) LYOPHILIZED POWDER [Suspect]
     Indication: CROHN'S DISEASE
     Dosage: 5 MG/KG, INTRAVENOUS
     Route: 042
     Dates: start: 20030715
  2. MERCAPTOPURINE [Concomitant]
  3. MESALAMINE [Concomitant]

REACTIONS (3)
  - ANAEMIA [None]
  - INFUSION RELATED REACTION [None]
  - RECTAL HAEMORRHAGE [None]
